FAERS Safety Report 16640984 (Version 1)
Quarter: 2019Q3

REPORT INFORMATION
  Report Type: Spontaneous
  Country: ZA (occurrence: ZA)
  Receive Date: 20190729
  Receipt Date: 20190729
  Transmission Date: 20191004
  Serious: Yes (Hospitalization)
  Sender: FDA-Public Use
  Company Number: ZA-SCIEGEN PHARMACEUTICALS INC-2019SCILIT00220

PATIENT
  Age: 14 Year
  Sex: Female

DRUGS (6)
  1. SODIUM BICARBONATE. [Interacting]
     Active Substance: SODIUM BICARBONATE
  2. GLUCOSE [Suspect]
     Active Substance: DEXTROSE
  3. DEXTROSE. [Interacting]
     Active Substance: DEXTROSE
  4. CALCIUM GLUCONATE. [Interacting]
     Active Substance: CALCIUM GLUCONATE
  5. INSULIN [Interacting]
     Active Substance: INSULIN NOS
  6. METFORMIN HYDROCHLORIDETABLETS [Suspect]
     Active Substance: METFORMIN HYDROCHLORIDE

REACTIONS (8)
  - Suicide attempt [Recovered/Resolved]
  - Hepatic enzyme increased [Recovered/Resolved]
  - Toxicity to various agents [Recovered/Resolved]
  - Hypoglycaemia [Recovered/Resolved]
  - Intentional overdose [Recovered/Resolved]
  - Leukocytosis [Recovered/Resolved]
  - Lactic acidosis [Recovered/Resolved]
  - Acute kidney injury [Recovered/Resolved]
